FAERS Safety Report 8611343-X (Version None)
Quarter: 2012Q3

REPORT INFORMATION
  Report Type: 
  Country: None (occurrence: None)
  Receive Date: 20120822
  Receipt Date: 20120815
  Transmission Date: 20120928
  Serious: Yes (Other)
  Sender: FDA-Public Use
  Company Number: IL-PFIZER INC-2012191916

PATIENT
  Age: 72 Year
  Sex: Female
  Weight: 46 kg

DRUGS (2)
  1. PANTOPRAZOLE [Suspect]
     Dosage: 20 MG, UNK
     Route: 048
     Dates: start: 20120101, end: 20120101
  2. PANTOPRAZOLE [Suspect]
     Indication: DYSPEPSIA
     Dosage: 20 MG, 1X/DAY
     Route: 048
     Dates: start: 20120709, end: 20120101

REACTIONS (3)
  - HEART RATE INCREASED [None]
  - ARRHYTHMIA [None]
  - EXTRASYSTOLES [None]
